FAERS Safety Report 7114126-5 (Version None)
Quarter: 2010Q4

REPORT INFORMATION
  Report Type: 
  Country: None (occurrence: None)
  Receive Date: 20101119
  Receipt Date: 20101116
  Transmission Date: 20110411
  Serious: Yes (Death)
  Sender: FDA-Public Use
  Company Number: US-ELI_LILLY_AND_COMPANY-US201009007067

PATIENT
  Sex: Male

DRUGS (1)
  1. GEMZAR [Suspect]
     Dates: end: 20100114

REACTIONS (1)
  - MALIGNANT NEOPLASM PROGRESSION [None]
